FAERS Safety Report 12798250 (Version 1)
Quarter: 2016Q3

REPORT INFORMATION
  Report Type: Spontaneous
  Country: US (occurrence: US)
  Receive Date: 20160930
  Receipt Date: 20160930
  Transmission Date: 20161109
  Serious: No
  Sender: FDA-Public Use
  Company Number: US-LEO PHARMA-244135

PATIENT
  Age: 55 Year
  Sex: Female

DRUGS (1)
  1. PICATO [Suspect]
     Active Substance: INGENOL MEBUTATE
     Indication: PRECANCEROUS SKIN LESION
     Route: 061
     Dates: start: 20160918, end: 20160919

REACTIONS (6)
  - Application site irritation [Not Recovered/Not Resolved]
  - Incorrect drug administration duration [Unknown]
  - Application site erythema [Not Recovered/Not Resolved]
  - Application site papules [Not Recovered/Not Resolved]
  - Application site scab [Not Recovered/Not Resolved]
  - Drug administered at inappropriate site [Unknown]

NARRATIVE: CASE EVENT DATE: 20160918
